FAERS Safety Report 13236744 (Version 1)
Quarter: 2020Q3

REPORT INFORMATION
  Report Type: Report from Study
  Country: CA (occurrence: CA)
  Receive Date: 20170215
  Receipt Date: 20170215
  Transmission Date: 20201105
  Serious: Yes (Hospitalization)
  Sender: FDA-Public Use
  Company Number: CA-PFIZER INC-2017030917

PATIENT
  Age: 54 Year
  Sex: Male
  Weight: 76 kg

DRUGS (3)
  1. TREMELIMUMAB. [Suspect]
     Active Substance: TREMELIMUMAB
     Indication: NEOPLASM MALIGNANT
     Dosage: 1 MG/KG, CYCLIC EVERY 4 WEEKS
     Route: 042
     Dates: start: 20161109
  2. MEDI4736 [Suspect]
     Active Substance: DURVALUMAB
     Indication: NEOPLASM MALIGNANT
     Dosage: 10 MG/KG, CYCLIC EVERY 4 WEEKS
     Route: 042
     Dates: start: 20161109
  3. FRAGMIN [Suspect]
     Active Substance: DALTEPARIN SODIUM
     Indication: PULMONARY EMBOLISM
     Dosage: 12500 IU, 1X/DAY
     Route: 058
     Dates: start: 20160508, end: 20170117

REACTIONS (1)
  - Haemorrhagic arteriovenous malformation [Recovered/Resolved with Sequelae]

NARRATIVE: CASE EVENT DATE: 20170116
